FAERS Safety Report 20791448 (Version 1)
Quarter: 2022Q2

REPORT INFORMATION
  Report Type: Spontaneous
  Country: US (occurrence: None)
  Receive Date: 20220505
  Receipt Date: 20220505
  Transmission Date: 20220721
  Serious: Yes (Hospitalization)
  Sender: FDA-Public Use
  Company Number: None

PATIENT
  Age: 85 Year
  Sex: Male
  Weight: 89 kg

DRUGS (2)
  1. PHENYTOIN [Suspect]
     Active Substance: PHENYTOIN
     Indication: Epilepsy
     Dosage: FREQUENCY : TWICE A DAY;?
     Route: 048
     Dates: start: 20200213, end: 20220111
  2. TOPIRAMATE [Suspect]
     Active Substance: TOPIRAMATE

REACTIONS (11)
  - Fall [None]
  - Toxicity to various agents [None]
  - Ataxia [None]
  - Aphasia [None]
  - Seizure [None]
  - Mastoiditis [None]
  - Sinusitis [None]
  - Meningitis aseptic [None]
  - Treatment noncompliance [None]
  - Ischaemic stroke [None]
  - Myoclonus [None]

NARRATIVE: CASE EVENT DATE: 20220111
